FAERS Safety Report 7794320-0 (Version None)
Quarter: 2011Q4

REPORT INFORMATION
  Report Type: 
  Country: None (occurrence: None)
  Receive Date: 20111004
  Receipt Date: 20110927
  Transmission Date: 20120403
  Serious: Yes (Other)
  Sender: FDA-Public Use
  Company Number: AU-PFIZER INC-2011207413

PATIENT
  Age: 64 Year
  Sex: Male

DRUGS (15)
  1. OSTELIN [Concomitant]
  2. GLICLAZIDE [Concomitant]
  3. TAZOCIN EF [Concomitant]
     Dosage: 4.5 G, 3X/DAY (8-HOURLY)
     Route: 042
     Dates: start: 20110902, end: 20110903
  4. ENOXAPARIN SODIUM [Concomitant]
  5. TEGRETOL [Concomitant]
  6. SUTENT [Suspect]
     Indication: RENAL CELL CARCINOMA
     Dosage: 50 MG, 1X/DAY
     Route: 048
     Dates: start: 20110701, end: 20110801
  7. IRBESARTAN + HYDROCHLOROTHIAZIDE [Concomitant]
  8. LIPITOR [Concomitant]
  9. LASIX [Concomitant]
  10. METOPROLOL [Concomitant]
  11. MOXONIDINE [Concomitant]
  12. METFORMIN [Concomitant]
  13. TEMAZEPAM [Concomitant]
  14. SLOW-K [Concomitant]
  15. MEROPENEM [Concomitant]
     Dosage: 50 G, 3X/DAY (8-HOURLY)
     Route: 042
     Dates: start: 20110903, end: 20110909

REACTIONS (3)
  - BRAIN OEDEMA [None]
  - PYODERMA GANGRENOSUM [None]
  - PALMAR-PLANTAR ERYTHRODYSAESTHESIA SYNDROME [None]
